FAERS Safety Report 6267428-9 (Version None)
Quarter: 2009Q4

REPORT INFORMATION
  Report Type: 
  Country: None (occurrence: None)
  Receive Date: 20090710
  Receipt Date: 20090629
  Transmission Date: 20100525
  Serious: Yes (Hospitalization)
  Sender: FDA-Public Use
  Company Number: 2009-01482

PATIENT
  Age: 61 Year
  Sex: Male

DRUGS (10)
  1. VELCADE [Suspect]
     Indication: MULTIPLE MYELOMA
     Dosage: 3.5 MG, INTRAVENOUS
     Route: 042
     Dates: start: 20090209, end: 20090216
  2. PIPERACILLIN AND TAZOBACTAM [Suspect]
     Indication: DRUG USE FOR UNKNOWN INDICATION
     Dosage: 4 G
     Dates: start: 20090211, end: 20090223
  3. OFLOXACIN [Suspect]
     Indication: DRUG USE FOR UNKNOWN INDICATION
     Dosage: 200 MG
  4. VALACYCLOVIR HCL [Suspect]
     Indication: DRUG USE FOR UNKNOWN INDICATION
     Dosage: 500 MG
     Dates: end: 20090217
  5. PANTOPRAZOLE SODIUM [Suspect]
     Indication: DRUG USE FOR UNKNOWN INDICATION
  6. CALCIUM CARBONATE [Suspect]
     Indication: DRUG USE FOR UNKNOWN INDICATION
  7. FOLIC ACID [Suspect]
     Indication: DRUG USE FOR UNKNOWN INDICATION
  8. HEPARIN-FRACTION CALCIUM SALT [Suspect]
     Indication: DRUG USE FOR UNKNOWN INDICATION
  9. LASIX [Suspect]
     Indication: DRUG USE FOR UNKNOWN INDICATION
  10. DEXAMETHASONE [Concomitant]

REACTIONS (8)
  - CARDIAC FAILURE [None]
  - CONFUSIONAL STATE [None]
  - ENCEPHALOPATHY [None]
  - MULTIPLE MYELOMA [None]
  - MYOCLONUS [None]
  - PSYCHOMOTOR RETARDATION [None]
  - RENAL FAILURE ACUTE [None]
  - TUMOUR LYSIS SYNDROME [None]
